FAERS Safety Report 5049299-1 (Version None)
Quarter: 2006Q3

REPORT INFORMATION
  Report Type: 
  Country: None (occurrence: None)
  Receive Date: 20060712
  Receipt Date: 20060704
  Transmission Date: 20061208
  Serious: Yes (Hospitalization, Other)
  Sender: FDA-Public Use
  Company Number: 2006PK01477

PATIENT
  Age: 27102 Day
  Sex: Female

DRUGS (9)
  1. NOLVADEX [Suspect]
     Indication: BREAST CANCER
     Route: 048
     Dates: start: 20031219, end: 20051206
  2. ARIMIDEX [Suspect]
     Indication: BREAST CANCER
     Route: 048
     Dates: start: 20051207
  3. BETASERC [Concomitant]
     Indication: DIZZINESS
     Route: 048
  4. NYZOC [Concomitant]
     Indication: HYPERCHOLESTEROLAEMIA
     Route: 048
  5. TRITTICO RETARD [Concomitant]
     Indication: DEPRESSION
     Route: 048
  6. EBRANTIL [Concomitant]
     Indication: HYPERTENSION
     Route: 048
  7. HALCION [Concomitant]
     Indication: SLEEP DISORDER
     Route: 048
  8. SEROPRAM [Concomitant]
     Indication: DEPRESSION
     Route: 048
  9. SPIRIVA [Concomitant]
     Indication: ASTHMA
     Route: 055

REACTIONS (2)
  - ADNEXA UTERI CYST [None]
  - ENDOMETRIAL DISORDER [None]
